FAERS Safety Report 7507569-9 (Version None)
Quarter: 2011Q2

REPORT INFORMATION
  Report Type: 
  Country: None (occurrence: None)
  Receive Date: 20110526
  Receipt Date: 20110519
  Transmission Date: 20111010
  Serious: Yes (Hospitalization, Other)
  Sender: FDA-Public Use
  Company Number: US-RB-025528-11

PATIENT
  Age: 17 Year
  Sex: Male

DRUGS (3)
  1. STRATTERA [Suspect]
     Indication: ATTENTION DEFICIT/HYPERACTIVITY DISORDER
     Dosage: DOSAGE UNKNOWN.
     Route: 048
     Dates: start: 20110101
  2. SUBOXONE [Suspect]
     Indication: DRUG DEPENDENCE
     Route: 060
     Dates: start: 20110324, end: 20110101
  3. SUBOXONE [Suspect]
     Route: 060
     Dates: start: 20110101

REACTIONS (4)
  - DEHYDRATION [None]
  - VOMITING [None]
  - INSOMNIA [None]
  - CONVULSION [None]
